FAERS Safety Report 4621466-8 (Version None)
Quarter: 2005Q2

REPORT INFORMATION
  Report Type: 
  Country: None (occurrence: None)
  Receive Date: 20050317
  Receipt Date: 20040202
  Transmission Date: 20051028
  Serious: Yes (Other)
  Sender: FDA-Public Use
  Company Number: PHEH2004US01473

PATIENT
  Age: 28 Year
  Sex: Female

DRUGS (5)
  1. TRILEPTAL [Suspect]
     Indication: EPILEPSY
     Dosage: 900 MG BID ORAL
     Route: 048
     Dates: start: 20031007
  2. KEPPRA [Concomitant]
  3. CARBATROL (CARBAMAZAPINE) [Concomitant]
  4. DIASTAT ^ATHENA^ (DIAZEPAM) [Concomitant]
  5. FOLIC ACID [Concomitant]

REACTIONS (1)
  - HYPERTENSION [None]
